FAERS Safety Report 25201472 (Version 2)
Quarter: 2025Q3

REPORT INFORMATION
  Report Type: Spontaneous
  Country: EU (occurrence: EU)
  Receive Date: 20250416
  Receipt Date: 20250701
  Transmission Date: 20251020
  Serious: Yes (Hospitalization, Other)
  Sender: AUROBINDO
  Company Number: EU-MYLANLABS-2025M1026999

PATIENT
  Age: 11 Year
  Sex: Female

DRUGS (6)
  1. ARIPIPRAZOLE [Suspect]
     Active Substance: ARIPIPRAZOLE
     Indication: Product used for unknown indication
     Route: 065
  2. LACOSAMIDE [Suspect]
     Active Substance: LACOSAMIDE
     Indication: Product used for unknown indication
     Route: 065
  3. CENOBAMATE [Suspect]
     Active Substance: CENOBAMATE
     Indication: Product used for unknown indication
     Dosage: 6.25 MILLIGRAM, ONCE A DAY
     Route: 065
  4. CENOBAMATE [Suspect]
     Active Substance: CENOBAMATE
     Dosage: 100 MILLIGRAM, ONCE A DAY
     Route: 065
  5. CLOBAZAM [Suspect]
     Active Substance: CLOBAZAM
     Indication: Product used for unknown indication
     Route: 065
  6. CARBAMAZEPINE [Suspect]
     Active Substance: CARBAMAZEPINE
     Indication: Product used for unknown indication
     Route: 065

REACTIONS (4)
  - Suicidal ideation [Recovered/Resolved]
  - Seizure [Unknown]
  - Aggression [Unknown]
  - Drug ineffective [Unknown]
